FAERS Safety Report 8575237 (Version 2)
Quarter: 2013Q2

REPORT INFORMATION
  Report Type: Spontaneous
  Country: US (occurrence: US)
  Receive Date: 20120523
  Receipt Date: 20130621
  Transmission Date: 20140414
  Serious: Yes (Hospitalization)
  Sender: FDA-Public Use
  Company Number: US-JNJFOC-20120508292

PATIENT
  Sex: Female

DRUGS (25)
  1. UNSPECIFIED FENTANYL TRANSDERMAL SYSTEM [Suspect]
     Indication: SURGERY
     Route: 062
  2. FENTANYL CITRATE [Suspect]
     Indication: PRODUCT USED FOR UNKNOWN INDICATION
     Route: 042
  3. CELEBREX [Suspect]
     Indication: BACK PAIN
     Dosage: 1 IN MORNING AND 1 AT NIGHT
     Route: 065
  4. CELEBREX [Suspect]
     Indication: ARTHRITIS
     Dosage: 1 IN MORNING AND 1 AT NIGHT
     Route: 065
  5. TYLENOL [Concomitant]
     Indication: PAIN
     Dosage: 2-4 PER DAY
     Route: 065
  6. LORAZEPAM [Concomitant]
     Indication: PANIC ATTACK
     Dosage: THE PATIENT TAKES 1/2 TO 3/4 PILL PER DAY AS NEEDED
     Route: 048
  7. MULTIVITAMINS [Concomitant]
     Dosage: ONCE IN THE MORNING
     Route: 048
  8. VITAMIN C [Concomitant]
     Dosage: WITH ROSE HIPS, ONCE IN THE MORNING AND ONCE AT NIGHT
     Route: 048
  9. CALCIUM AND VITAMIN D [Concomitant]
     Dosage: ONCE IN THE MORNING AT ONCE AT NIGHT
     Route: 048
  10. GLUCOSAMINE [Concomitant]
     Dosage: ONCE IN THE MORNING AND ONCE AT NIGHT
     Route: 065
  11. UNKNOWN MEDICATION [Concomitant]
     Route: 065
  12. COLACE [Concomitant]
     Dosage: 2IN THE MORNIND AND 3 AT NIGHT
     Route: 048
  13. UNKNOWN MEDICATION [Concomitant]
     Dosage: 2IN THE MORNING AND 3 AT NIGHT
     Route: 048
  14. OMNICEF [Concomitant]
     Indication: OROPHARYNGEAL PAIN
     Route: 048
  15. OMNICEF [Concomitant]
     Indication: SINUS DISORDER
     Route: 048
  16. CYCLOBENZAPRINE [Concomitant]
     Indication: IRRITABLE BOWEL SYNDROME
     Dosage: AS NEEDED
     Route: 048
  17. CYCLOBENZAPRINE [Concomitant]
     Indication: BACK PAIN
     Dosage: AS NEEDED
     Route: 048
  18. NIFEDIAC [Concomitant]
     Indication: RAYNAUD^S PHENOMENON
     Dosage: ONCE IN THE MORNING
     Route: 048
  19. OMEPRAZOLE [Concomitant]
     Indication: GASTRIC DISORDER
     Dosage: ONCE IN THE MORNING
     Route: 048
  20. RANITIDINE [Concomitant]
     Indication: GASTRIC DISORDER
     Dosage: TWICE PER DAY AT NIGHT
     Route: 048
  21. ACARBOSE [Concomitant]
     Route: 048
  22. ESTRADIOL [Concomitant]
     Indication: MENOPAUSE
     Dosage: ONCE IN THE MORNING
     Route: 048
  23. ULTRAM [Concomitant]
     Indication: BACK PAIN
     Dosage: ONCE EVERY FOUR TO SIX HOURS
     Route: 048
  24. MEDROXYPROGESTERONE [Concomitant]
     Indication: MENOPAUSE
     Dosage: ONCE IN THE MORNING
     Route: 048
  25. GLYCET [Concomitant]
     Indication: DIABETES MELLITUS
     Dosage: 1 PILL IN THE MORNING AND 1 IN THE AFTERNOON
     Route: 048

REACTIONS (2)
  - Panic attack [Unknown]
  - Insomnia [Unknown]
